FAERS Safety Report 8103524-9 (Version None)
Quarter: 2012Q1

REPORT INFORMATION
  Report Type: 
  Country: None (occurrence: None)
  Receive Date: 20120201
  Receipt Date: 20120130
  Transmission Date: 20120608
  Serious: No
  Sender: FDA-Public Use
  Company Number: PHEH2012US001555

PATIENT
  Sex: Female
  Weight: 117 kg

DRUGS (6)
  1. FOSAMAX [Suspect]
  2. ZOMETA [Suspect]
     Dosage: UNK
     Route: 042
     Dates: start: 20070101
  3. ZOMETA [Suspect]
     Dosage: UNK
     Route: 042
     Dates: start: 20110101
  4. ZOMETA [Suspect]
     Indication: BONE DISORDER
     Dosage: UNK
     Route: 042
     Dates: start: 20060101
  5. ZOMETA [Suspect]
     Dosage: UNK
     Route: 042
     Dates: start: 20090101
  6. RECLAST [Suspect]
     Indication: BONE DISORDER
     Dosage: UNK
     Dates: start: 20080101

REACTIONS (1)
  - NO ADVERSE EVENT [None]
